FAERS Safety Report 6211762-5 (Version None)
Quarter: 2009Q2

REPORT INFORMATION
  Report Type: 
  Country: None (occurrence: None)
  Receive Date: 20090522
  Receipt Date: 20090323
  Transmission Date: 20091009
  Serious: No
  Sender: FDA-Public Use
  Company Number: 8044244

PATIENT
  Age: 73 Year
  Sex: Female
  Weight: 60 kg

DRUGS (6)
  1. CIMZIA [Suspect]
     Indication: CROHN'S DISEASE
     Dosage: 400 MG SC
     Route: 058
     Dates: start: 20090304
  2. ACTOPLUS MET [Concomitant]
  3. ENTOCORT EC [Concomitant]
  4. PENTASA [Concomitant]
  5. NEXIUM [Concomitant]
  6. PROPRANOLOL HYDROCHLORIDE [Concomitant]

REACTIONS (2)
  - HEART RATE IRREGULAR [None]
  - HYPOTENSION [None]
